FAERS Safety Report 11474491 (Version 1)
Quarter: 2015Q3

REPORT INFORMATION
  Report Type: Spontaneous
  Country: CH (occurrence: CH)
  Receive Date: 20150908
  Receipt Date: 20150908
  Transmission Date: 20151125
  Serious: No
  Sender: FDA-Public Use
  Company Number: CH-JAZZ-2014-CH-014629

PATIENT
  Sex: Female

DRUGS (5)
  1. CYMBALTA [Suspect]
     Active Substance: DULOXETINE HYDROCHLORIDE
     Indication: CATAPLEXY
     Dosage: 30 MG, QD
     Route: 065
     Dates: start: 2014, end: 2014
  2. XYREM [Suspect]
     Active Substance: SODIUM OXYBATE
     Indication: NARCOLEPSY
     Dosage: 3 G, BID
     Route: 048
     Dates: start: 2013
  3. MODASOMIL [Suspect]
     Active Substance: MODAFINIL
     Indication: NARCOLEPSY
     Dosage: 200 MG, BID
     Route: 065
     Dates: start: 2013
  4. CYMBALTA [Suspect]
     Active Substance: DULOXETINE HYDROCHLORIDE
     Indication: ANXIETY
     Dosage: 30 MG, QD
     Route: 065
     Dates: end: 201310
  5. CYMBALTA [Suspect]
     Active Substance: DULOXETINE HYDROCHLORIDE
     Dosage: 30 MG, EVERY THREE DAYS
     Route: 065
     Dates: start: 2014, end: 2014

REACTIONS (4)
  - Dysgeusia [Recovered/Resolved]
  - Weight decreased [Unknown]
  - Ageusia [Not Recovered/Not Resolved]
  - Fatigue [Not Recovered/Not Resolved]

NARRATIVE: CASE EVENT DATE: 2014
